FAERS Safety Report 25543714 (Version 1)
Quarter: 2025Q3

REPORT INFORMATION
  Report Type: Report from Study
  Country: US (occurrence: US)
  Receive Date: 20250711
  Receipt Date: 20250711
  Transmission Date: 20251021
  Serious: Yes (Other)
  Sender: JAZZ
  Company Number: US-JAZZ PHARMACEUTICALS-2025-US-016952

PATIENT
  Age: 53 Year
  Sex: Female

DRUGS (18)
  1. XYWAV [Suspect]
     Active Substance: CALCIUM OXYBATE\MAGNESIUM OXYBATE\POTASSIUM OXYBATE\SODIUM OXYBATE
     Indication: Narcolepsy
  2. XYWAV [Suspect]
     Active Substance: CALCIUM OXYBATE\MAGNESIUM OXYBATE\POTASSIUM OXYBATE\SODIUM OXYBATE
     Indication: Cataplexy
  3. XYWAV [Suspect]
     Active Substance: CALCIUM OXYBATE\MAGNESIUM OXYBATE\POTASSIUM OXYBATE\SODIUM OXYBATE
     Indication: Somnolence
  4. CYMBALTA [Concomitant]
     Active Substance: DULOXETINE HYDROCHLORIDE
     Indication: Product used for unknown indication
     Dates: start: 20150922
  5. SYNTHROID [Concomitant]
     Active Substance: LEVOTHYROXINE SODIUM
     Indication: Product used for unknown indication
     Dates: start: 20150922
  6. VALTREX [Concomitant]
     Active Substance: VALACYCLOVIR HYDROCHLORIDE
     Indication: Product used for unknown indication
     Dates: start: 20150922
  7. ESOMEPRAZOLE ACCORD [ESOMEPRAZOLE MAGNESIUM] [Concomitant]
     Indication: Product used for unknown indication
     Dosage: UNK UNK, QD
     Dates: start: 20151223
  8. ALLEGRA D 24 HR [Concomitant]
     Indication: Product used for unknown indication
     Dates: start: 20170603
  9. ADDERALL [Concomitant]
     Active Substance: AMPHETAMINE ASPARTATE\AMPHETAMINE SULFATE\DEXTROAMPHETAMINE SACCHARATE\DEXTROAMPHETAMINE SULFATE
     Indication: Product used for unknown indication
     Dates: start: 20170615
  10. ADDERALL [Concomitant]
     Active Substance: AMPHETAMINE ASPARTATE\AMPHETAMINE SULFATE\DEXTROAMPHETAMINE SACCHARATE\DEXTROAMPHETAMINE SULFATE
     Dates: start: 20170615
  11. HYDROCHLOROTHIAZIDE\OLMESARTAN MEDOXOMIL [Concomitant]
     Active Substance: HYDROCHLOROTHIAZIDE\OLMESARTAN MEDOXOMIL
     Indication: Product used for unknown indication
     Dates: start: 20180801
  12. LINZESS [Concomitant]
     Active Substance: LINACLOTIDE
     Indication: Product used for unknown indication
     Dates: start: 20200410
  13. ESZOPICLONE [Concomitant]
     Active Substance: ESZOPICLONE
     Indication: Product used for unknown indication
     Dates: start: 20200516
  14. KLOR-CON M20 [Concomitant]
     Active Substance: POTASSIUM CHLORIDE
     Indication: Product used for unknown indication
     Dates: start: 20200531
  15. WAKIX [Concomitant]
     Active Substance: PITOLISANT HYDROCHLORIDE
     Indication: Product used for unknown indication
     Dates: start: 20210301
  16. HYDROXYZINE HYDROCHLORIDE [Concomitant]
     Active Substance: HYDROXYZINE HYDROCHLORIDE
     Indication: Product used for unknown indication
     Dates: start: 20250701
  17. LEVOTHYROXINE [Concomitant]
     Active Substance: LEVOTHYROXINE
     Indication: Product used for unknown indication
     Dates: start: 20150922
  18. AZATHIOPRINE [Concomitant]
     Active Substance: AZATHIOPRINE
     Indication: Product used for unknown indication
     Dates: start: 20230101

REACTIONS (1)
  - Systemic lupus erythematosus [Unknown]

NARRATIVE: CASE EVENT DATE: 20230101
